FAERS Safety Report 20576781 (Version 5)
Quarter: 2023Q2

REPORT INFORMATION
  Report Type: Report from Study
  Country: JP (occurrence: JP)
  Receive Date: 20220310
  Receipt Date: 20230613
  Transmission Date: 20230721
  Serious: Yes (Other)
  Sender: FDA-Public Use
  Company Number: JP-ASTELLAS-2022JP004014

PATIENT
  Age: 66 Year
  Sex: Male
  Weight: 61.3 kg

DRUGS (5)
  1. ENFORTUMAB VEDOTIN [Suspect]
     Active Substance: ENFORTUMAB VEDOTIN
     Indication: Transitional cell carcinoma
     Dosage: 1.25 MG/KG, ONCE/WEEK, INTERRUPTED IN THE FOURTH WEEK
     Route: 041
     Dates: start: 20220215, end: 20220623
  2. ENFORTUMAB VEDOTIN [Suspect]
     Active Substance: ENFORTUMAB VEDOTIN
     Dosage: 1.0 MG/KG, ONCE/WEEK, INTERRUPTED IN THE FOURTH WEEK
     Route: 041
     Dates: start: 20220728, end: 20220804
  3. ENFORTUMAB VEDOTIN [Suspect]
     Active Substance: ENFORTUMAB VEDOTIN
     Dosage: 1.0 MG/KG, ONCE/WEEK, INTERRUPTED IN THE FOURTH WEEK
     Route: 041
     Dates: start: 20220818, end: 20221020
  4. NAPROXEN SODIUM [Suspect]
     Active Substance: NAPROXEN SODIUM
     Indication: Cancer pain
     Dosage: UNK UNK, UNKNOWN FREQ.
     Route: 065
  5. PEMBROLIZUMAB [Concomitant]
     Active Substance: PEMBROLIZUMAB
     Indication: Transitional cell carcinoma
     Dosage: UNK UNK, UNKNOWN FREQ.
     Route: 065
     Dates: start: 20211116, end: 20220125

REACTIONS (1)
  - Gastric ulcer [Recovered/Resolved]

NARRATIVE: CASE EVENT DATE: 20220201
